FAERS Safety Report 16740823 (Version 1)
Quarter: 2019Q3

REPORT INFORMATION
  Report Type: Spontaneous
  Country: US (occurrence: US)
  Receive Date: 20190709
  Receipt Date: 20190709
  Transmission Date: 20191005
  Serious: Yes (Hospitalization)
  Sender: FDA-Public Use
  Company Number: None

PATIENT
  Age: 59 Year
  Sex: Female
  Weight: 64.3 kg

DRUGS (4)
  1. DOXORUBICIN HYDROCHLORIDE. [Suspect]
     Active Substance: DOXORUBICIN HYDROCHLORIDE
     Dates: end: 20190328
  2. TAXOL [Suspect]
     Active Substance: PACLITAXEL
     Dates: end: 20190617
  3. CARBOPLATIN. [Suspect]
     Active Substance: CARBOPLATIN
     Dates: end: 20190328
  4. CYCLOPHOSPHAMIDE. [Suspect]
     Active Substance: CYCLOPHOSPHAMIDE
     Dates: end: 20190328

REACTIONS (15)
  - Cholecystitis acute [None]
  - Therapy cessation [None]
  - White blood cells urine positive [None]
  - White blood cell count decreased [None]
  - Neutrophil count decreased [None]
  - Packed red blood cell transfusion [None]
  - Post procedural fever [None]
  - Blood potassium decreased [None]
  - Blood urine present [None]
  - Pulmonary mass [None]
  - Bacterial test [None]
  - Eyelid infection [None]
  - Blood urea increased [None]
  - Anaemia [None]
  - Platelet count decreased [None]

NARRATIVE: CASE EVENT DATE: 20190704
